FAERS Safety Report 5370150-4 (Version None)
Quarter: 2007Q2

REPORT INFORMATION
  Report Type: 
  Country: None (occurrence: None)
  Receive Date: 20070613
  Receipt Date: 20070330
  Transmission Date: 20071010
  Serious: No
  Sender: FDA-Public Use
  Company Number: IND-AE-07-SAN-013

PATIENT
  Age: 84 Year
  Sex: Male

DRUGS (3)
  1. SANCTURA [Suspect]
     Indication: URINARY INCONTINENCE
     Dosage: 2 TABS DAILY - PO
     Route: 048
     Dates: start: 20070323, end: 20070328
  2. ASPIRIN [Concomitant]
  3. TIMOLOL OPTH SOLN 0.25% [Concomitant]

REACTIONS (2)
  - DRUG INEFFECTIVE [None]
  - POLLAKIURIA [None]
